FAERS Safety Report 8017116-3 (Version None)
Quarter: 2012Q1

REPORT INFORMATION
  Report Type: 
  Country: None (occurrence: None)
  Receive Date: 20120102
  Receipt Date: 20111222
  Transmission Date: 20120608
  Serious: Yes (Other)
  Sender: FDA-Public Use
  Company Number: US-ROCHE-1017815

PATIENT
  Sex: Male
  Weight: 67.1 kg

DRUGS (27)
  1. ASPIRIN [Concomitant]
     Route: 048
     Dates: start: 19950101, end: 20090112
  2. SYNTHROID [Concomitant]
     Indication: HYPOTHYROIDISM
     Route: 048
     Dates: start: 20100814
  3. VEMURAFENIB [Suspect]
     Indication: METASTATIC MALIGNANT MELANOMA
     Route: 048
     Dates: start: 20100914
  4. FISH OIL [Concomitant]
     Route: 048
  5. REMICADE [Concomitant]
     Route: 042
     Dates: start: 20110429
  6. LORATADINE [Concomitant]
     Indication: HYPERSENSITIVITY
     Route: 048
     Dates: start: 20091201
  7. ASPIRIN [Concomitant]
     Indication: MYALGIA
     Route: 048
     Dates: start: 20091201
  8. MIRALAX [Concomitant]
     Route: 048
     Dates: start: 20110112
  9. CLARITIN-D [Concomitant]
     Dosage: PRN
     Dates: start: 20100720
  10. BACTROBAN [Concomitant]
     Dosage: PRN
     Dates: start: 20101221
  11. MULTI-VITAMIN [Concomitant]
     Dosage: ONE DOSE FORM
     Dates: start: 20100801
  12. AUGMENTIN [Concomitant]
     Dosage: 875/125 MG
     Route: 048
     Dates: start: 20110208, end: 20110219
  13. ONDANSETRON [Concomitant]
     Indication: VOMITING
     Dates: start: 20100908
  14. VITAMIN D [Concomitant]
     Dosage: 2000 UNITS
     Route: 048
     Dates: start: 20100801
  15. PEPCID [Concomitant]
     Dates: start: 20110125
  16. MORPHINE [Concomitant]
     Dosage: 2 DOSE FORM IN MONRINING AND 1 DOSE FORM IN EVENING
     Dates: start: 20110212
  17. PROCHLORPERAZINE [Concomitant]
     Dosage: 6 HR PRN
     Route: 048
     Dates: start: 20101220
  18. LORAZEPAM [Concomitant]
     Route: 048
     Dates: start: 20100201, end: 20100601
  19. BENAZEPRIL HYDROCHLORIDE [Concomitant]
     Indication: BLOOD PRESSURE
     Route: 048
     Dates: start: 20070601
  20. PREDNISOLONE [Concomitant]
     Indication: INFLAMMATION
     Dates: start: 20110406
  21. PREDNISOLONE [Concomitant]
     Dates: start: 20100401
  22. POTASSIUM CHLORIDE [Concomitant]
     Dosage: 20 MEQ
     Dates: start: 20110525
  23. FLUCONAZOLE [Concomitant]
     Route: 048
     Dates: start: 20110506, end: 20110520
  24. VITAMIN B COMPLEX CAP [Concomitant]
     Route: 048
     Dates: start: 20110506
  25. PREDNISOLONE [Concomitant]
     Dates: start: 20110103
  26. REMICADE [Concomitant]
     Route: 042
     Dates: start: 20110318
  27. MUPIROCIN [Concomitant]
     Dates: end: 20110607

REACTIONS (1)
  - TONGUE NEOPLASM MALIGNANT STAGE UNSPECIFIED [None]
